FAERS Safety Report 4437770-2 (Version None)
Quarter: 2004Q3

REPORT INFORMATION
  Report Type: 
  Country: None (occurrence: None)
  Receive Date: 20040728
  Receipt Date: 20040316
  Transmission Date: 20050211
  Serious: No
  Sender: FDA-Public Use
  Company Number: USA040362233

PATIENT
  Age: 13 Year
  Sex: Male
  Weight: 61 kg

DRUGS (2)
  1. STRATTERA [Suspect]
     Indication: ATTENTION DEFICIT/HYPERACTIVITY DISORDER
     Dosage: 18 MG
     Dates: start: 20040315
  2. CLONIDINE HCL [Concomitant]

REACTIONS (3)
  - AGGRESSION [None]
  - ANGER [None]
  - DRUG INEFFECTIVE [None]
